FAERS Safety Report 21976689 (Version 1)
Quarter: 2023Q1

REPORT INFORMATION
  Report Type: Spontaneous
  Country: GB (occurrence: GB)
  Receive Date: 20230210
  Receipt Date: 20230210
  Transmission Date: 20230418
  Serious: No
  Sender: FDA-Public Use
  Company Number: None

PATIENT
  Age: 78 Year
  Sex: Female
  Weight: 84.2 kg

DRUGS (4)
  1. EZETIMIBE [Suspect]
     Active Substance: EZETIMIBE
     Indication: Glucose tolerance impaired
     Dosage: UNK, QD (TAKE ONE DAILY FOR CHOLESTEROL)
     Route: 065
     Dates: start: 20221024
  2. EZETIMIBE [Suspect]
     Active Substance: EZETIMIBE
     Dosage: UNK, QD (TAKE ONE DAILY FOR CHOLESTEROL)
     Route: 065
     Dates: start: 20221024
  3. METFORMIN [Concomitant]
     Active Substance: METFORMIN HYDROCHLORIDE
     Indication: Glucose tolerance impaired
     Dosage: UNK (TAKE 1 WITH BREAKFAST AND 1 WITH EVENING MEAL BUT INTRODUCE GRADUALLY AS INSTRUCTED)
     Route: 065
     Dates: start: 20221024
  4. PROPRANOLOL [Concomitant]
     Active Substance: PROPRANOLOL HYDROCHLORIDE
     Indication: Essential hypertension
     Dosage: UNK (ONE TO BE TAKEN EACH DAY)
     Route: 065
     Dates: start: 20220812

REACTIONS (1)
  - Diarrhoea [Recovered/Resolved]

NARRATIVE: CASE EVENT DATE: 20221026
